FAERS Safety Report 5144086-8 (Version None)
Quarter: 2006Q4

REPORT INFORMATION
  Report Type: 
  Country: None (occurrence: None)
  Receive Date: 20061106
  Receipt Date: 20061026
  Transmission Date: 20070319
  Serious: Yes (Hospitalization)
  Sender: FDA-Public Use
  Company Number: FR-GLAXOSMITHKLINE-B0445054A

PATIENT
  Age: 53 Year
  Sex: Male
  Weight: 69 kg

DRUGS (8)
  1. AUGMENTIN '125' [Suspect]
     Indication: PNEUMONIA HAEMOPHILUS
     Route: 042
     Dates: start: 20060704, end: 20060711
  2. AMOXICILLIN [Concomitant]
     Indication: PNEUMONIA PNEUMOCOCCAL
     Route: 065
     Dates: start: 20060601
  3. VANCOMYCIN [Concomitant]
     Indication: PNEUMONIA STAPHYLOCOCCAL
     Route: 065
  4. TAZOCILLINE [Concomitant]
     Indication: PNEUMONIA HAEMOPHILUS
     Route: 065
  5. GENTAMICIN [Concomitant]
     Indication: PNEUMONIA HAEMOPHILUS
     Route: 065
  6. LASIX [Concomitant]
     Route: 065
  7. INIPOMP [Concomitant]
     Route: 065
  8. HEMODIALYSIS [Concomitant]
     Dates: start: 20060707

REACTIONS (18)
  - ANURIA [None]
  - BLOOD CREATININE INCREASED [None]
  - EOSINOPHILIA [None]
  - ERYTHEMA [None]
  - EXFOLIATIVE RASH [None]
  - HAEMODIALYSIS [None]
  - HYPERSENSITIVITY [None]
  - PROTEINURIA [None]
  - PRURIGO [None]
  - PRURITUS [None]
  - RASH MACULO-PAPULAR [None]
  - RENAL FAILURE ACUTE [None]
  - RENAL TUBULAR DISORDER [None]
  - RETINOL BINDING PROTEIN INCREASED [None]
  - SCRATCH [None]
  - SKIN EXFOLIATION [None]
  - TRANSFERRIN ABNORMAL [None]
  - TUBULOINTERSTITIAL NEPHRITIS [None]
